FAERS Safety Report 12775562 (Version 1)
Quarter: 2016Q3

REPORT INFORMATION
  Report Type: Spontaneous
  Country: US (occurrence: US)
  Receive Date: 20160923
  Receipt Date: 20160923
  Transmission Date: 20161109
  Serious: No
  Sender: FDA-Public Use
  Company Number: US-ACTAVIS-2016-09383

PATIENT
  Sex: Female

DRUGS (1)
  1. CLOBETASOL PROPIONATE (AMALLC) [Suspect]
     Active Substance: CLOBETASOL PROPIONATE
     Indication: ECZEMA
     Dosage: UNK, PRN
     Route: 061

REACTIONS (1)
  - Skin discolouration [Not Recovered/Not Resolved]
